FAERS Safety Report 25102608 (Version 8)
Quarter: 2025Q2

REPORT INFORMATION
  Report Type: Spontaneous
  Country: US (occurrence: US)
  Receive Date: 20250321
  Receipt Date: 20250618
  Transmission Date: 20250716
  Serious: Yes (Other)
  Sender: BAUSCH AND LOMB
  Company Number: US-BAUSCHBL-2025BNL004526

PATIENT
  Age: 53 Year
  Sex: Male

DRUGS (4)
  1. DEXAMETHASONE\NEOMYCIN\POLYMYXIN B SULFATE [Suspect]
     Active Substance: DEXAMETHASONE\NEOMYCIN\POLYMYXIN B SULFATE
     Indication: Conjunctivitis
     Route: 065
  2. DEXAMETHASONE\NEOMYCIN\POLYMYXIN B SULFATE [Suspect]
     Active Substance: DEXAMETHASONE\NEOMYCIN\POLYMYXIN B SULFATE
     Indication: Eye infection
  3. PEVISONE [Concomitant]
     Indication: Product used for unknown indication
     Route: 065
  4. MAXITROL [Concomitant]
     Active Substance: DEXAMETHASONE\NEOMYCIN SULFATE\POLYMYXIN B SULFATE
     Indication: Product used for unknown indication
     Route: 065

REACTIONS (15)
  - Uveitis [Unknown]
  - Herpes ophthalmic [Unknown]
  - Eye pain [Unknown]
  - Visual impairment [Not Recovered/Not Resolved]
  - Ill-defined disorder [Unknown]
  - Burning sensation [Unknown]
  - Lacrimation increased [Unknown]
  - Loss of personal independence in daily activities [Unknown]
  - Insomnia [Unknown]
  - Herpes zoster [Unknown]
  - Eye irritation [Unknown]
  - Vision blurred [Unknown]
  - Pain [Unknown]
  - Inflammation [Unknown]
  - Eye disorder [Unknown]
